FAERS Safety Report 7889713-7 (Version None)
Quarter: 2011Q4

REPORT INFORMATION
  Report Type: 
  Country: None (occurrence: None)
  Receive Date: 20111103
  Receipt Date: 20111025
  Transmission Date: 20120403
  Serious: Yes (Other)
  Sender: FDA-Public Use
  Company Number: US-GENZYME-FABR-1002141

PATIENT

DRUGS (7)
  1. FABRAZYME [Suspect]
     Dosage: 1 MG/KG, Q2W
     Route: 042
     Dates: start: 20070126, end: 20100901
  2. NEURONTIN [Concomitant]
     Indication: NEUROPATHY PERIPHERAL
     Dosage: 800 MG, Q3HR
     Route: 065
  3. VALIUM [Concomitant]
     Indication: ANXIETY
  4. METOPROLOL TARTRATE [Concomitant]
     Indication: HYPERTENSION
     Dosage: UNK
     Route: 065
  5. PROVIGIL [Concomitant]
     Indication: FATIGUE
     Dosage: UNK MG, Q3HR
     Route: 065
  6. FABRAZYME [Suspect]
     Indication: FABRY'S DISEASE
     Dosage: 1 MG/KG, Q2-4W
     Route: 042
     Dates: start: 20100901
  7. VALIUM [Concomitant]
     Indication: SLEEP DISORDER
     Dosage: UNK
     Route: 065

REACTIONS (1)
  - ACUTE CORONARY SYNDROME [None]
